FAERS Safety Report 7562825-3 (Version None)
Quarter: 2011Q2

REPORT INFORMATION
  Report Type: 
  Country: None (occurrence: None)
  Receive Date: 20110615
  Receipt Date: 20110602
  Transmission Date: 20111010
  Serious: Yes (Other)
  Sender: FDA-Public Use
  Company Number: 2011MA006820

PATIENT
  Age: 64 Year
  Sex: Male
  Weight: 83.9154 kg

DRUGS (33)
  1. FLONASE [Concomitant]
  2. NSAIDS [Concomitant]
  3. AMLODIPINE [Concomitant]
  4. DICYCLOMINE [Concomitant]
  5. TIZINEDINE [Concomitant]
  6. PAXIL [Concomitant]
  7. LOTREL [Concomitant]
  8. ULTRAM [Concomitant]
  9. MU BLOCKAGE [Concomitant]
  10. RESERPINE [Concomitant]
  11. FIORICET [Concomitant]
  12. LEVOTHROID [Concomitant]
  13. ALLEGRA [Concomitant]
  14. FEXOFENADINE [Concomitant]
  15. PRILOSEC [Concomitant]
  16. BACTRIM [Concomitant]
  17. SINGULAIR [Concomitant]
  18. ELAVIL [Concomitant]
  19. NALTREXONE HYDROCHLORIDE [Concomitant]
  20. ZANAFLEX [Concomitant]
  21. TETRABENAZINE [Concomitant]
  22. ATORVASTATIN CALCIUM [Concomitant]
  23. METOCLOPRAMIDE [Suspect]
     Indication: GASTROINTESTINAL MOTILITY DISORDER
     Dosage: 10 MG; QID
     Dates: start: 20110214
  24. LEVOTHYROXINE SODIUM [Concomitant]
  25. INDOCIN [Concomitant]
  26. CIPROFOXACIN [Concomitant]
  27. FLEXERIL [Concomitant]
  28. ACUFEX [Concomitant]
  29. NEXIUM [Concomitant]
  30. ZOCOR [Concomitant]
  31. DOXYCYCLINE [Concomitant]
  32. SYNTHROID [Concomitant]
  33. COGENTIN [Concomitant]

REACTIONS (33)
  - STEREOTYPY [None]
  - PAIN IN EXTREMITY [None]
  - ARRHYTHMIA [None]
  - HYPERTENSIVE HEART DISEASE [None]
  - BLEPHAROSPASM [None]
  - ABDOMINAL PAIN UPPER [None]
  - DYSPHAGIA [None]
  - DYSURIA [None]
  - MOVEMENT DISORDER [None]
  - INGUINAL HERNIA [None]
  - COLONIC POLYP [None]
  - TREMOR [None]
  - DYSPEPSIA [None]
  - HIATUS HERNIA [None]
  - DIVERTICULUM INTESTINAL [None]
  - DYSTONIA [None]
  - HEADACHE [None]
  - BLOOD GLUCOSE INCREASED [None]
  - RENAL CYST [None]
  - DECREASED APPETITE [None]
  - TARDIVE DYSKINESIA [None]
  - MEIGE'S SYNDROME [None]
  - HYPERTENSION [None]
  - PNEUMONIA [None]
  - BACK PAIN [None]
  - LIPOMA EXCISION [None]
  - PAIN IN JAW [None]
  - TENDON RUPTURE [None]
  - VENTRICULAR EXTRASYSTOLES [None]
  - FATIGUE [None]
  - WEIGHT DECREASED [None]
  - JOINT INJURY [None]
  - OSTEOARTHRITIS [None]
